FAERS Safety Report 10595367 (Version 1)
Quarter: 2014Q4

REPORT INFORMATION
  Report Type: Spontaneous
  Country: US (occurrence: None)
  Receive Date: 20141118
  Receipt Date: 20141118
  Transmission Date: 20150529
  Serious: Yes (Other)
  Sender: FDA-Public Use
  Company Number: 2014-US-014728

PATIENT
  Age: 86 Year
  Sex: Female

DRUGS (15)
  1. AMLODIPINE [Concomitant]
     Active Substance: AMLODIPINE BESYLATE
  2. ADVIL [Concomitant]
     Active Substance: IBUPROFEN
  3. VITAMINS (ONE-A-DAY VITAMIN) [Concomitant]
  4. DULOXETINE (DULOXETINE) [Concomitant]
  5. XYREM [Suspect]
     Active Substance: SODIUM OXYBATE
     Indication: CATAPLEXY
     Route: 048
     Dates: start: 200403
  6. TORSEMIDE (TORSEMIDE) [Concomitant]
  7. BYSTOLIC [Concomitant]
     Active Substance: NEBIVOLOL HYDROCHLORIDE
  8. VITAMIN B12 [Concomitant]
     Active Substance: CYANOCOBALAMIN
  9. FLUOXETINE [Concomitant]
     Active Substance: FLUOXETINE\FLUOXETINE HYDROCHLORIDE
  10. MONTELUKAST (MONTELUKAST SODIUM) [Concomitant]
  11. TRAMADOL (TRAMADOL HYDROCHLORIDE) [Concomitant]
     Active Substance: TRAMADOL HYDROCHLORIDE
  12. LISINOPRIL (LINSINOPRIL) [Concomitant]
  13. CLONAZEPAM (CLONAZEPAM) [Concomitant]
  14. LEVOTHYROXINE (LEVOTHYROXINE SODIUM) [Concomitant]
  15. XYREM [Suspect]
     Active Substance: SODIUM OXYBATE
     Indication: NARCOLEPSY
     Route: 048
     Dates: start: 200403

REACTIONS (6)
  - Visual impairment [None]
  - Fall [None]
  - Cerebrovascular accident [None]
  - Contusion [None]
  - Hand fracture [None]
  - Laceration [None]

NARRATIVE: CASE EVENT DATE: 201410
